FAERS Safety Report 23862200 (Version 11)
Quarter: 2025Q1

REPORT INFORMATION
  Report Type: Spontaneous
  Country: US (occurrence: US)
  Receive Date: 20240516
  Receipt Date: 20250305
  Transmission Date: 20250409
  Serious: Yes (Hospitalization, Other)
  Sender: RANBAXY
  Company Number: US-SUN PHARMACEUTICAL INDUSTRIES LTD-2024R1-429657

PATIENT
  Sex: Female
  Weight: 65.306 kg

DRUGS (21)
  1. EPOPROSTENOL [Suspect]
     Active Substance: EPOPROSTENOL
     Indication: Pulmonary arterial hypertension
     Route: 042
     Dates: start: 20240111
  2. EPOPROSTENOL [Suspect]
     Active Substance: EPOPROSTENOL
     Route: 042
     Dates: start: 20240111
  3. EPOPROSTENOL [Suspect]
     Active Substance: EPOPROSTENOL
     Route: 042
     Dates: start: 20240111
  4. EPOPROSTENOL [Suspect]
     Active Substance: EPOPROSTENOL
     Route: 042
     Dates: start: 20240111
  5. EPOPROSTENOL [Suspect]
     Active Substance: EPOPROSTENOL
     Route: 042
  6. EPOPROSTENOL [Suspect]
     Active Substance: EPOPROSTENOL
     Route: 042
     Dates: start: 20240111
  7. EPOPROSTENOL [Suspect]
     Active Substance: EPOPROSTENOL
     Route: 042
     Dates: start: 20240111
  8. SILDENAFIL CITRATE [Concomitant]
     Active Substance: SILDENAFIL CITRATE
     Indication: Product used for unknown indication
     Route: 065
  9. SYMBICORT [Concomitant]
     Active Substance: BUDESONIDE\FORMOTEROL FUMARATE DIHYDRATE
     Indication: Product used for unknown indication
     Route: 065
  10. DIPHENHYDRAMINE HYDROCHLORIDE [Concomitant]
     Active Substance: DIPHENHYDRAMINE HYDROCHLORIDE
     Indication: Product used for unknown indication
     Route: 065
  11. SIMETHICONE (DIMETHICONE) [Concomitant]
     Active Substance: DIMETHICONE
     Indication: Product used for unknown indication
     Route: 065
  12. POTASSIUM CHLORIDE [Concomitant]
     Active Substance: POTASSIUM CHLORIDE
     Indication: Product used for unknown indication
     Route: 065
  13. ACETAMINOPHEN [Concomitant]
     Active Substance: ACETAMINOPHEN
     Indication: Product used for unknown indication
     Route: 065
  14. PEPCID [Concomitant]
     Active Substance: FAMOTIDINE
     Indication: Product used for unknown indication
  15. LIPITOR [Concomitant]
     Active Substance: ATORVASTATIN CALCIUM
     Indication: Product used for unknown indication
  16. GUAIFENESIN [Concomitant]
     Active Substance: GUAIFENESIN
     Indication: Product used for unknown indication
  17. CALCIUM CARBONATE [Concomitant]
     Active Substance: CALCIUM CARBONATE
     Indication: Product used for unknown indication
  18. DUPIXENT [Concomitant]
     Active Substance: DUPILUMAB
     Indication: Product used for unknown indication
  19. METFORMIN HYDROCHLORIDE [Concomitant]
     Active Substance: METFORMIN HYDROCHLORIDE
     Indication: Product used for unknown indication
  20. ZYRTEC [Concomitant]
     Active Substance: CETIRIZINE HYDROCHLORIDE
     Indication: Product used for unknown indication
  21. SENNA LAXATIVE [Concomitant]
     Active Substance: SENNOSIDES
     Indication: Product used for unknown indication

REACTIONS (14)
  - Complication associated with device [Unknown]
  - Mechanical urticaria [Recovering/Resolving]
  - Dyspnoea [Unknown]
  - Lung transplant [Unknown]
  - Rash [Unknown]
  - Pruritus [Unknown]
  - Tinnitus [Unknown]
  - Sinus disorder [Unknown]
  - Decreased appetite [Unknown]
  - Dyspnoea [Unknown]
  - Sinusitis [Unknown]
  - Skin irritation [Unknown]
  - Injection site erythema [Unknown]
  - Myalgia [Unknown]
